FAERS Safety Report 5526094-8 (Version None)
Quarter: 2007Q4

REPORT INFORMATION
  Report Type: 
  Country: None (occurrence: None)
  Receive Date: 20071120
  Receipt Date: 20071105
  Transmission Date: 20080405
  Serious: Yes (Hospitalization)
  Sender: FDA-Public Use
  Company Number: 100#08#2007-04600

PATIENT
  Age: 66 Year
  Sex: Female

DRUGS (8)
  1. METHOTREXATE [Suspect]
     Indication: NON-HODGKIN'S LYMPHOMA
     Dosage: 120 MG/M2X 6 CYCLES
  2. EPIRUBICIN (EPIRUBICIN) (EPIRUBICIN) [Suspect]
     Indication: NON-HODGKIN'S LYMPHOMA
     Dosage: 30 MG/M2 X 6 CYCLES
  3. CYCLOPHOSPHAMIDE [Suspect]
     Indication: NON-HODGKIN'S LYMPHOMA
     Dosage: 150 MG/M2X 6 CYCLES ADMINISTERED EVERY 21 DAYS
  4. ETOPOSIDE [Suspect]
     Indication: NON-HODGKIN'S LYMPHOMA
     Dosage: 120 MG/M2X 6 CYCLES ADMINISTERED EVERY 21 DAYS
  5. CYTARABINE [Suspect]
     Indication: NON-HODGKIN'S LYMPHOMA
     Dosage: 300 MG/M2X 6 CYCLES EVERY 21 DAYS
  6. VINCRISTINE [Suspect]
     Indication: NON-HODGKIN'S LYMPHOMA
     Dosage: 1.4 MG/M2X 6 CYCLES ADMINISTERED EVERY 21 DAYS
  7. BLEOMYCIN (BLEOMYCIN) (BLEOMYCIN) [Suspect]
     Indication: NON-HODGKIN'S LYMPHOMA
     Dosage: 5 U/M2X 6 CYCLES ADMINISTERED EVERY 21 DAYS
  8. PREDNISONE [Suspect]
     Indication: NON-HODGKIN'S LYMPHOMA
     Dosage: 60 MG/M2ON DA1-14 EVERY 21 DAYS

REACTIONS (4)
  - HYDRONEPHROSIS [None]
  - LYMPHADENOPATHY [None]
  - RENAL FAILURE ACUTE [None]
  - RETROPERITONEAL FIBROSIS [None]
